FAERS Safety Report 7279761-2 (Version None)
Quarter: 2011Q1

REPORT INFORMATION
  Report Type: 
  Country: None (occurrence: None)
  Receive Date: 20110208
  Receipt Date: 20110202
  Transmission Date: 20110831
  Serious: Yes (Life-Threatening, Other)
  Sender: FDA-Public Use
  Company Number: JP-CELGENEUS-087-21880-11020216

PATIENT
  Sex: Female

DRUGS (15)
  1. CELECOXIB [Concomitant]
     Route: 048
     Dates: start: 20100701, end: 20101208
  2. NORVASC [Concomitant]
     Indication: HYPERTENSION
     Route: 048
     Dates: start: 20100701, end: 20101208
  3. SELBEX [Concomitant]
     Route: 048
     Dates: start: 20100701, end: 20101208
  4. GASTER D [Concomitant]
     Route: 048
     Dates: start: 20100701, end: 20101208
  5. WARFARIN [Concomitant]
     Indication: PROPHYLAXIS
     Route: 048
     Dates: start: 20100701, end: 20101208
  6. MAGMITT [Concomitant]
     Indication: PROPHYLAXIS
     Route: 048
     Dates: start: 20100701, end: 20101208
  7. LENADEX [Suspect]
     Route: 048
     Dates: start: 20101117, end: 20101120
  8. MUCODYNE [Concomitant]
     Indication: PROPHYLAXIS
     Route: 048
     Dates: start: 20100929, end: 20101208
  9. CRESTOR [Concomitant]
     Route: 048
     Dates: start: 20090507, end: 20101208
  10. ZOVIRAX [Concomitant]
     Indication: PROPHYLAXIS
     Route: 048
     Dates: start: 20100701, end: 20101208
  11. REVLIMID [Suspect]
     Indication: MULTIPLE MYELOMA
     Route: 048
     Dates: start: 20101110, end: 20101116
  12. REVLIMID [Suspect]
     Route: 048
     Dates: start: 20101117, end: 20101123
  13. BONALON [Concomitant]
     Route: 048
     Dates: start: 20100701, end: 20101208
  14. LOXONIN [Concomitant]
     Indication: PROPHYLAXIS
     Route: 048
     Dates: start: 20100701, end: 20101208
  15. LENADEX [Suspect]
     Indication: MULTIPLE MYELOMA
     Route: 048
     Dates: start: 20101110, end: 20101113

REACTIONS (4)
  - MALAISE [None]
  - INFECTION [None]
  - NEUTROPENIA [None]
  - THROMBOCYTOPENIA [None]
